FAERS Safety Report 9757288 (Version 2)
Quarter: 2014Q1

REPORT INFORMATION
  Report Type: Report from Study
  Country: US (occurrence: US)
  Receive Date: 20131214
  Receipt Date: 20140109
  Transmission Date: 20141002
  Serious: Yes (Other)
  Sender: FDA-Public Use
  Company Number: US-ROCHE-1314529

PATIENT
  Sex: Female

DRUGS (7)
  1. AVASTIN [Suspect]
     Indication: DIABETIC RETINOPATHY
     Route: 050
     Dates: start: 20131126
  2. AVASTIN [Suspect]
     Indication: DIABETIC RETINAL OEDEMA
  3. GLYBURIDE [Concomitant]
     Route: 048
  4. LANTUS [Concomitant]
     Route: 058
  5. LOVASTATIN [Concomitant]
     Route: 048
  6. METFORMIN [Concomitant]
     Route: 065
  7. SYSTANE [Concomitant]
     Dosage: DOSE: 1 DROP BOTH EYES TID
     Route: 047

REACTIONS (6)
  - Eye pruritus [Unknown]
  - Lacrimation increased [Unknown]
  - Retinal haemorrhage [Unknown]
  - Hyalosis asteroid [Unknown]
  - Corneal disorder [Unknown]
  - Corneal disorder [Unknown]
